FAERS Safety Report 17942976 (Version 1)
Quarter: 2020Q2

REPORT INFORMATION
  Report Type: Spontaneous
  Country: US (occurrence: US)
  Receive Date: 20200625
  Receipt Date: 20200625
  Transmission Date: 20200714
  Serious: Yes (Other)
  Sender: FDA-Public Use
  Company Number: None

PATIENT
  Age: 72 Year
  Sex: Male
  Weight: 100.7 kg

DRUGS (5)
  1. CEFTRIAXONE 2G [Concomitant]
     Dates: start: 20200623, end: 20200623
  2. REMDESIVIR. [Suspect]
     Active Substance: REMDESIVIR
     Indication: COVID-19
     Dosage: ?          OTHER FREQUENCY:ONCE;?
     Route: 041
     Dates: start: 20200624, end: 20200624
  3. EFFEXOR [Concomitant]
     Active Substance: VENLAFAXINE HYDROCHLORIDE
  4. AZITHROMYCIN 250 MG [Concomitant]
     Active Substance: AZITHROMYCIN ANHYDROUS
     Dates: start: 20200623
  5. MIRTAZAPINE 45 MG [Concomitant]

REACTIONS (4)
  - Rash erythematous [None]
  - Tachycardia [None]
  - Rash papular [None]
  - Hypertension [None]

NARRATIVE: CASE EVENT DATE: 20200624
